FAERS Safety Report 18834105 (Version 1)
Quarter: 2021Q1

REPORT INFORMATION
  Report Type: Spontaneous
  Country: US (occurrence: US)
  Receive Date: 20210202
  Receipt Date: 20210202
  Transmission Date: 20210419
  Serious: Yes (Other)
  Sender: FDA-Public Use
  Company Number: None

PATIENT
  Age: 77 Year
  Sex: Male

DRUGS (27)
  1. DDAVP [Concomitant]
     Active Substance: DESMOPRESSIN ACETATE
  2. ONE TOUCH [Concomitant]
     Active Substance: DEXTROSE
  3. CRESTOR [Concomitant]
     Active Substance: ROSUVASTATIN CALCIUM
  4. METFORMIN [Concomitant]
     Active Substance: METFORMIN HYDROCHLORIDE
  5. ALOPRINOL [Concomitant]
     Active Substance: ALLOPURINOL
  6. AMLODIPINE [Concomitant]
     Active Substance: AMLODIPINE BESYLATE
  7. DESMOPRESSIN [Concomitant]
     Active Substance: DESMOPRESSIN
  8. DOXAZOSIN [Concomitant]
     Active Substance: DOXAZOSIN MESYLATE
  9. FLUOXETINE [Concomitant]
     Active Substance: FLUOXETINE HYDROCHLORIDE
  10. JANUMET [Concomitant]
     Active Substance: METFORMIN HYDROCHLORIDE\SITAGLIPTIN PHOSPHATE
  11. ROSUVASTATIN. [Concomitant]
     Active Substance: ROSUVASTATIN
  12. TRIAMT/HCTZ [Concomitant]
     Active Substance: HYDROCHLOROTHIAZIDE\TRIAMTERENE
  13. OMEGA?3 ACIDS [Concomitant]
     Active Substance: OMEGA-3 FATTY ACIDS
  14. NUTROPIN [Suspect]
     Active Substance: SOMATROPIN
     Indication: DWARFISM
     Dosage: ?          OTHER FREQUENCY:EVERY EVENING;?
     Route: 058
     Dates: start: 20150702
  15. PREDNISONE. [Concomitant]
     Active Substance: PREDNISONE
  16. REPAGLINIDE. [Concomitant]
     Active Substance: REPAGLINIDE
  17. VENLAFAXINE [Concomitant]
     Active Substance: VENLAFAXINE HYDROCHLORIDE
  18. PIOGLITAZONE. [Concomitant]
     Active Substance: PIOGLITAZONE
  19. VITAMIN D3 [Concomitant]
     Active Substance: CHOLECALCIFEROL
  20. FENOFIBRATE. [Concomitant]
     Active Substance: FENOFIBRATE
  21. RISEDRONATE [Concomitant]
     Active Substance: RISEDRONATE SODIUM
  22. SYNTHROID [Concomitant]
     Active Substance: LEVOTHYROXINE SODIUM
  23. TAMSULOSIN [Concomitant]
     Active Substance: TAMSULOSIN
  24. VALSARTAN. [Concomitant]
     Active Substance: VALSARTAN
  25. FISH OIL [Concomitant]
     Active Substance: FISH OIL
  26. IBRESATAN [Concomitant]
  27. LULICONAZOLE. [Concomitant]
     Active Substance: LULICONAZOLE

REACTIONS (1)
  - Blood urine present [None]

NARRATIVE: CASE EVENT DATE: 20210131
